FAERS Safety Report 17988514 (Version 1)
Quarter: 2020Q3

REPORT INFORMATION
  Report Type: Spontaneous
  Country: US (occurrence: US)
  Receive Date: 20200706
  Receipt Date: 20200706
  Transmission Date: 20201103
  Serious: Yes (Disabling)
  Sender: FDA-Public Use
  Company Number: None

PATIENT
  Age: 71 Year
  Sex: Male
  Weight: 85.5 kg

DRUGS (8)
  1. ROSUVASTATIN 5 MG TABLET [Suspect]
     Active Substance: ROSUVASTATIN
     Indication: BLOOD CHOLESTEROL
     Dosage: ?          QUANTITY:1 TABLET(S);?
     Route: 048
     Dates: start: 20200618, end: 20200704
  2. LOSARTAN/HCT [Concomitant]
     Active Substance: HYDROCHLOROTHIAZIDE\LOSARTAN POTASSIUM
  3. MULTI VITAMIN [Concomitant]
     Active Substance: VITAMINS
  4. ZINC GLUCONATE 50 [Concomitant]
  5. ASPIRIN 81 MG [Concomitant]
     Active Substance: ASPIRIN
  6. METOPOROL ER [Concomitant]
  7. RESVERATROL [Concomitant]
     Active Substance: DIETARY SUPPLEMENT\RESVERATROL
  8. ZINC 50 [Concomitant]

REACTIONS (4)
  - Musculoskeletal pain [None]
  - Gait inability [None]
  - Weight increased [None]
  - Arthralgia [None]

NARRATIVE: CASE EVENT DATE: 20200618
